FAERS Safety Report 5645473-1 (Version None)
Quarter: 2008Q1

REPORT INFORMATION
  Report Type: 
  Country: None (occurrence: None)
  Receive Date: 20080229
  Receipt Date: 20070828
  Transmission Date: 20080703
  Serious: No
  Sender: FDA-Public Use
  Company Number: US-BRISTOL-MYERS SQUIBB COMPANY-13891585

PATIENT
  Age: 76 Year
  Sex: Female
  Weight: 55 kg

DRUGS (9)
  1. TAXOL [Suspect]
     Route: 042
     Dates: start: 20070701
  2. TAXOTERE [Suspect]
     Indication: OVARIAN CANCER
  3. CARBOPLATIN [Concomitant]
  4. LISINOPRIL [Concomitant]
  5. GLUTAMINE [Concomitant]
  6. PREDNISONE TAB [Concomitant]
     Route: 042
  7. TAGAMET [Concomitant]
     Route: 042
  8. ALOXI [Concomitant]
     Route: 042
  9. ALLEGRA [Concomitant]

REACTIONS (5)
  - ASTHENIA [None]
  - BALANCE DISORDER [None]
  - HYPOAESTHESIA [None]
  - NEUROPATHY PERIPHERAL [None]
  - PAIN IN EXTREMITY [None]
